FAERS Safety Report 9501124 (Version 1)
Quarter: 2013Q1

REPORT INFORMATION
  Report Type: Spontaneous
  Country: US (occurrence: None)
  Receive Date: 20130117
  Receipt Date: 20130117
  Transmission Date: 20140127
  Serious: Yes (Other)
  Sender: FDA-Public Use
  Company Number: 1210USA008593

PATIENT
  Age: 11 Year
  Sex: 0

DRUGS (1)
  1. DULERA [Suspect]
     Indication: ASTHMA
     Dates: start: 20120827, end: 201209

REACTIONS (1)
  - Convulsion [None]
